FAERS Safety Report 9842203 (Version 1)
Quarter: 2014Q1

REPORT INFORMATION
  Report Type: Spontaneous
  Country: US (occurrence: US)
  Receive Date: 20140124
  Receipt Date: 20140124
  Transmission Date: 20141002
  Serious: Yes (Hospitalization)
  Sender: FDA-Public Use
  Company Number: US-GLAXOSMITHKLINE-A1057090A

PATIENT
  Age: 66 Year
  Sex: Female

DRUGS (15)
  1. ADVAIR [Suspect]
     Indication: CHRONIC OBSTRUCTIVE PULMONARY DISEASE
     Dosage: 1PUFF TWICE PER DAY
     Route: 055
  2. EDARBI [Suspect]
     Indication: HYPERTENSION
     Route: 065
  3. GLYBURIDE [Concomitant]
  4. METFORMIN [Concomitant]
  5. ONGLYZA [Concomitant]
  6. XALATAN [Concomitant]
  7. SPIRIVA [Concomitant]
  8. LORATADINE [Concomitant]
  9. LIPITOR [Concomitant]
  10. RANITIDINE [Concomitant]
  11. ASPIRIN [Concomitant]
  12. VITAMIN C [Concomitant]
  13. CALCIUM [Concomitant]
  14. CENTRUM SILVER [Concomitant]
  15. COMBIVENT [Concomitant]

REACTIONS (8)
  - Cellulitis [Recovering/Resolving]
  - Joint swelling [Recovering/Resolving]
  - Dry skin [Recovering/Resolving]
  - Wound [Recovering/Resolving]
  - Bacterial infection [Recovering/Resolving]
  - Skin fissures [Recovering/Resolving]
  - Rehabilitation therapy [Recovering/Resolving]
  - Hypotension [Recovering/Resolving]
